FAERS Safety Report 5144403-9 (Version None)
Quarter: 2006Q4

REPORT INFORMATION
  Report Type: 
  Country: None (occurrence: None)
  Receive Date: 20061030
  Receipt Date: 20061017
  Transmission Date: 20070319
  Serious: Yes (Hospitalization, Other)
  Sender: FDA-Public Use
  Company Number: 2006117506

PATIENT
  Age: 57 Year
  Sex: Female
  Weight: 74.3899 kg

DRUGS (4)
  1. GEODON [Suspect]
     Indication: ANXIETY DISORDER
     Dosage: 80 MG (80 MG, 1 IN 1 D), ORAL
     Route: 048
     Dates: start: 20060904, end: 20060904
  2. GEODON [Suspect]
     Indication: MAJOR DEPRESSION
     Dosage: 80 MG (80 MG, 1 IN 1 D), ORAL
     Route: 048
     Dates: start: 20060904, end: 20060904
  3. SOMA [Concomitant]
  4. ZOLOFT [Concomitant]

REACTIONS (17)
  - ALANINE AMINOTRANSFERASE INCREASED [None]
  - BARBITURATES POSITIVE [None]
  - BLOOD ALKALINE PHOSPHATASE INCREASED [None]
  - BLOOD CHLORIDE DECREASED [None]
  - BLOOD GLUCOSE INCREASED [None]
  - BLOOD SODIUM DECREASED [None]
  - DRUG SCREEN POSITIVE [None]
  - ELECTROCARDIOGRAM ABNORMAL [None]
  - ELECTROCARDIOGRAM QT CORRECTED INTERVAL PROLONGED [None]
  - HYPOTENSION [None]
  - OVERDOSE [None]
  - PROTEIN URINE PRESENT [None]
  - RED BLOOD CELL COUNT INCREASED [None]
  - RESPIRATORY RATE INCREASED [None]
  - SLEEP DISORDER [None]
  - SUICIDE ATTEMPT [None]
  - WHITE BLOOD CELLS URINE POSITIVE [None]
